FAERS Safety Report 10892308 (Version 2)
Quarter: 2015Q2

REPORT INFORMATION
  Report Type: Report from Study
  Country: JP (occurrence: JP)
  Receive Date: 20150306
  Receipt Date: 20150409
  Transmission Date: 20150821
  Serious: Yes (Death, Hospitalization)
  Sender: FDA-Public Use
  Company Number: JP-ABBVIE-13P-087-1041244-00

PATIENT
  Age: 63 Year
  Sex: Female

DRUGS (2)
  1. MOSAPRIDE CITRATE [Concomitant]
     Active Substance: MOSAPRIDE CITRATE
     Indication: PANCREATIC INSUFFICIENCY
     Route: 048
     Dates: start: 20120427, end: 20121226
  2. LIPACREON GRANULES 300MG SACHET [Suspect]
     Active Substance: PANCRELIPASE
     Indication: PANCREATIC INSUFFICIENCY
     Route: 048
     Dates: start: 20120327, end: 20121226

REACTIONS (3)
  - Malignant ascites [Not Recovered/Not Resolved]
  - Pancreatic carcinoma [Fatal]
  - Diarrhoea [Recovering/Resolving]

NARRATIVE: CASE EVENT DATE: 20120327
